FAERS Safety Report 6025004-7 (Version None)
Quarter: 2008Q4

REPORT INFORMATION
  Report Type: 
  Country: None (occurrence: None)
  Receive Date: 20081222
  Receipt Date: 20080916
  Transmission Date: 20090506
  Serious: No
  Sender: FDA-Public Use
  Company Number: ALL1-2008-02647

PATIENT
  Age: 43 Year
  Sex: Male
  Weight: 86.2 kg

DRUGS (6)
  1. VYVANSE [Suspect]
     Indication: ATTENTION DEFICIT/HYPERACTIVITY DISORDER
     Dosage: 20 MG, 1X/DAY:QD, ORAL
     Route: 048
     Dates: start: 20080916
  2. ADVAIR DISKUS 100/50 [Concomitant]
  3. VALIUM /00017001/ (DIAZEPAM) TABLET [Concomitant]
  4. XANAX [Concomitant]
  5. KLONOPIN [Concomitant]
  6. BENICAR [Concomitant]

REACTIONS (1)
  - SOMNOLENCE [None]
